FAERS Safety Report 24738035 (Version 1)
Quarter: 2024Q4

REPORT INFORMATION
  Report Type: Spontaneous
  Country: US (occurrence: None)
  Receive Date: 20241213
  Receipt Date: 20241213
  Transmission Date: 20250114
  Serious: Yes (Life-Threatening, Hospitalization)
  Sender: Public
  Company Number: None

PATIENT
  Age: 56 Year
  Sex: Male
  Weight: 86 kg

DRUGS (3)
  1. DICLOFENAC SODIUM [Suspect]
     Active Substance: DICLOFENAC SODIUM
     Indication: Pain
     Dosage: 75 .00 MG TWICE A DAY ORAL?
     Route: 048
     Dates: start: 20190205, end: 20240924
  2. PURE BAKING SODA [Suspect]
     Active Substance: SODIUM BICARBONATE
  3. BORAX (HOMEOPATHIC) [Suspect]
     Active Substance: HOMEOPATHICS\SODIUM BORATE

REACTIONS (1)
  - Anaphylactoid reaction [None]

NARRATIVE: CASE EVENT DATE: 20240917
